FAERS Safety Report 4768032-1 (Version None)
Quarter: 2005Q3

REPORT INFORMATION
  Report Type: 
  Country: None (occurrence: None)
  Receive Date: 20050913
  Receipt Date: 20050826
  Transmission Date: 20060218
  Serious: Yes (Death, Hospitalization, Other)
  Sender: FDA-Public Use
  Company Number: 2005BI010123

PATIENT
  Age: 59 Year
  Sex: Male

DRUGS (1)
  1. AVONEX [Suspect]
     Indication: MULTIPLE SCLEROSIS
     Dosage: 30 UG;QW;IM
     Route: 030
     Dates: start: 20040320, end: 20050101

REACTIONS (15)
  - ATELECTASIS [None]
  - CEREBELLAR HAEMORRHAGE [None]
  - CEREBRAL HAEMORRHAGE [None]
  - CHEST X-RAY ABNORMAL [None]
  - CONDITION AGGRAVATED [None]
  - HEPATIC CYST [None]
  - METASTASES TO ADRENALS [None]
  - METASTATIC NEOPLASM [None]
  - MULTIPLE SCLEROSIS [None]
  - NEOPLASM [None]
  - NEOPLASM MALIGNANT [None]
  - PLEURAL EFFUSION [None]
  - PULMONARY MASS [None]
  - SEPTIC EMBOLUS [None]
  - SOFT TISSUE DISORDER [None]
